FAERS Safety Report 6356754-0 (Version None)
Quarter: 2009Q3

REPORT INFORMATION
  Report Type: 
  Country: None (occurrence: None)
  Receive Date: 20090915
  Receipt Date: 20090904
  Transmission Date: 20100115
  Serious: Yes (Other)
  Sender: FDA-Public Use
  Company Number: US-SANOFI-SYNTHELABO-A03200904004

PATIENT
  Sex: Male
  Weight: 87.1 kg

DRUGS (9)
  1. ZANAFLEX [Suspect]
     Indication: FIBROMYALGIA
     Route: 048
     Dates: start: 19960101
  2. KLONOPIN [Suspect]
     Indication: DRUG USE FOR UNKNOWN INDICATION
     Route: 048
     Dates: start: 20040101
  3. SINGLET [Suspect]
     Indication: SEASONAL ALLERGY
     Dosage: UNK
     Route: 048
     Dates: start: 19990101
  4. NEURONTIN [Suspect]
     Indication: FIBROMYALGIA
     Dosage: 300 MG, ON AN INCREASING DOSE EVERY 3 DAYS
     Route: 048
     Dates: start: 20090825
  5. ACETAMINOPHEN AND OXYCODONE HCL [Suspect]
     Indication: BREAKTHROUGH PAIN
     Dosage: 1-2 TABLETS THREE TIMES A DAY AS NEEDED
     Route: 048
     Dates: start: 19960101
  6. OPANA ER [Suspect]
     Indication: PAIN
     Route: 048
     Dates: start: 20090812, end: 20090824
  7. OPANA ER [Suspect]
     Dosage: 2 IN THE MORNING, 1 AT MIDDAY, 2 AT NIGHT
     Route: 048
     Dates: start: 20090824, end: 20090825
  8. OPANA ER [Suspect]
     Route: 048
     Dates: start: 20090825, end: 20090827
  9. AMBIEN [Suspect]
     Indication: DRUG USE FOR UNKNOWN INDICATION
     Route: 048
     Dates: start: 19990101

REACTIONS (8)
  - CONFUSIONAL STATE [None]
  - CONTUSION [None]
  - FACIAL BONES FRACTURE [None]
  - HAEMOPTYSIS [None]
  - LOSS OF CONSCIOUSNESS [None]
  - PERIORBITAL HAEMATOMA [None]
  - ROAD TRAFFIC ACCIDENT [None]
  - WOUND [None]
